FAERS Safety Report 24029201 (Version 1)
Quarter: 2024Q2

REPORT INFORMATION
  Report Type: Spontaneous
  Country: US (occurrence: None)
  Receive Date: 20240628
  Receipt Date: 20240628
  Transmission Date: 20240716
  Serious: Yes (Other)
  Sender: FDA-Public Use
  Company Number: 2024A146357

PATIENT
  Age: 65 Year
  Sex: Male

DRUGS (8)
  1. DURVALUMAB [Suspect]
     Active Substance: DURVALUMAB
     Indication: Non-small cell lung cancer
     Dates: start: 202112
  2. DORZOLAMIDE\TIMOLOL [Concomitant]
     Active Substance: DORZOLAMIDE\TIMOLOL
     Dosage: TWICE DAILY IN THE LEFT EYE
  3. BRIMONIDINE [Concomitant]
     Active Substance: BRIMONIDINE TARTRATE
     Dosage: 0.2 % IN BOTH EYES
     Dates: end: 202203
  4. PREDNISONE [Concomitant]
     Active Substance: PREDNISONE
  5. ERYTHROMYCIN [Concomitant]
     Active Substance: ERYTHROMYCIN
  6. MOXIFLOXACIN [Concomitant]
     Active Substance: MOXIFLOXACIN
     Dosage: 0.5 %,
  7. TRIMETHOPRIM/POLYMYXIN [Concomitant]
  8. FLUOROMETHOLONE [Concomitant]
     Active Substance: FLUOROMETHOLONE

REACTIONS (5)
  - Limbal stem cell deficiency [Unknown]
  - Corneal perforation [Unknown]
  - Keratitis [Unknown]
  - Ocular pemphigoid [Unknown]
  - Chronic papillomatous dermatitis [Unknown]
